FAERS Safety Report 23633692 (Version 1)
Quarter: 2024Q1

REPORT INFORMATION
  Report Type: Spontaneous
  Country: US (occurrence: None)
  Receive Date: 20240314
  Receipt Date: 20240314
  Transmission Date: 20240410
  Serious: Yes (Hospitalization)
  Sender: FDA-Public Use
  Company Number: None

PATIENT
  Sex: Female

DRUGS (7)
  1. TACROLIMUS [Suspect]
     Active Substance: TACROLIMUS
     Indication: Renal transplant
     Dosage: TAKE 3 CAPSULES BY MOUTH IN THE MORNING AND 2 CAPSULES EVERY EVENING??
     Route: 048
     Dates: start: 201606
  2. TACROLIMUS [Suspect]
     Active Substance: TACROLIMUS
     Indication: Pancreas transplant
  3. MYCOPHENOLIC ACID [Suspect]
     Active Substance: MYCOPHENOLIC ACID
     Indication: Renal transplant
     Dosage: TAKE 2 TABLETS BY MOUTH IN THE MORNING AND TAKE 1 TABLET IN THE EVENING.?
     Route: 048
     Dates: start: 201601
  4. MYCOPHENOLIC ACID [Suspect]
     Active Substance: MYCOPHENOLIC ACID
     Indication: Pancreas transplant
  5. TADALAFIL [Concomitant]
     Active Substance: TADALAFIL
  6. OPSUMIT [Concomitant]
     Active Substance: MACITENTAN
  7. SIROLIMUS [Concomitant]
     Active Substance: SIROLIMUS

REACTIONS (1)
  - Sepsis [None]
